FAERS Safety Report 8286384-5 (Version None)
Quarter: 2012Q2

REPORT INFORMATION
  Report Type: 
  Country: None (occurrence: None)
  Receive Date: 20120411
  Receipt Date: 20120411
  Transmission Date: 20120825
  Serious: Yes (Life-Threatening, Hospitalization)
  Sender: FDA-Public Use
  Company Number: None

PATIENT
  Sex: Male
  Weight: 136.0791 kg

DRUGS (2)
  1. RAMIPRIL [Suspect]
     Indication: BLOOD PRESSURE
     Dosage: 2 DAILY
     Dates: start: 20050510, end: 20110511
  2. DIOVAN HCT [Suspect]
     Indication: BLOOD PRESSURE
     Dosage: 1 DAILY
     Dates: start: 20050501

REACTIONS (9)
  - DIZZINESS [None]
  - BLOOD PRESSURE DECREASED [None]
  - VISUAL IMPAIRMENT [None]
  - HYPERSOMNIA [None]
  - HAEMORRHAGE [None]
  - URINARY TRACT DISORDER [None]
  - CONTUSION [None]
  - NAUSEA [None]
  - GASTROINTESTINAL DISORDER [None]
